FAERS Safety Report 8588980-4 (Version None)
Quarter: 2012Q3

REPORT INFORMATION
  Report Type: 
  Country: None (occurrence: None)
  Receive Date: 20120813
  Receipt Date: 20120806
  Transmission Date: 20120928
  Serious: Yes (Other)
  Sender: FDA-Public Use
  Company Number: JP-VERTEX PHARMACEUTICALS INC.-AE-2012-008839

PATIENT
  Age: 60 Year
  Sex: Female

DRUGS (24)
  1. REBETOL [Concomitant]
     Route: 048
     Dates: start: 20120725, end: 20120731
  2. LEVOTHYROXINE SODIUM [Concomitant]
     Route: 048
  3. LENDORMIN D [Concomitant]
     Route: 048
     Dates: start: 20120216, end: 20120508
  4. REBETOL [Concomitant]
     Route: 048
     Dates: start: 20120303, end: 20120315
  5. PEG-INTRON [Concomitant]
     Indication: HEPATITIS C
     Route: 058
     Dates: start: 20120217, end: 20120417
  6. VALSARTAN  AND HYDROCHLOROTHIAZIDE [Concomitant]
     Route: 048
  7. OLOPATADINE HCL [Concomitant]
     Route: 048
     Dates: start: 20120217, end: 20120220
  8. TELAVIC [Suspect]
     Indication: HEPATITIS C
     Route: 048
     Dates: start: 20120217, end: 20120308
  9. REBETOL [Concomitant]
     Indication: HEPATITIS C
     Route: 048
     Dates: start: 20120217, end: 20120302
  10. HALCION [Concomitant]
     Route: 048
     Dates: start: 20120516
  11. REBETOL [Concomitant]
     Route: 048
     Dates: start: 20120523, end: 20120529
  12. PEG-INTRON [Concomitant]
     Route: 058
     Dates: start: 20120425
  13. TELAVIC [Suspect]
     Route: 048
     Dates: start: 20120309, end: 20120417
  14. JUZENTAIHOTO [Concomitant]
     Route: 048
  15. EPINASTINE HYDROCHLORIDE [Concomitant]
     Route: 048
     Dates: start: 20120221
  16. REBETOL [Concomitant]
     Route: 048
     Dates: start: 20120316, end: 20120328
  17. REBETOL [Concomitant]
     Route: 048
     Dates: start: 20120329, end: 20120417
  18. REBETOL [Concomitant]
     Route: 048
     Dates: start: 20120530, end: 20120724
  19. REBETOL [Concomitant]
     Route: 048
     Dates: start: 20120801
  20. FERROUS CITRATE [Concomitant]
     Route: 048
     Dates: end: 20120508
  21. BASEN OD [Concomitant]
     Route: 048
  22. NEO-MERCAZOLE TAB [Concomitant]
     Route: 048
  23. FERROUS CITRATE [Concomitant]
     Route: 048
     Dates: end: 20120725
  24. URSO 250 [Concomitant]
     Route: 048

REACTIONS (2)
  - HAEMOGLOBIN DECREASED [None]
  - NEUTROPHIL COUNT DECREASED [None]
